FAERS Safety Report 9159809 (Version 1)
Quarter: 2013Q1

REPORT INFORMATION
  Report Type: Spontaneous
  Country: US (occurrence: None)
  Receive Date: 20130222
  Receipt Date: 20130222
  Transmission Date: 20140127
  Serious: Yes (Other)
  Sender: FDA-Public Use
  Company Number: ACO_25178_2010

PATIENT
  Age: 47 Year
  Sex: Female

DRUGS (21)
  1. AMPYRA [Suspect]
     Indication: MULTIPLE SCLEROSIS
     Route: 048
     Dates: start: 20100605
  2. TIZANIDINE [Suspect]
     Dosage: 4 MG ONE IN THE MORNING, ONE IN THE EVENING AND TWO AT BEDTIME
  3. TYSABRI [Suspect]
     Indication: MULTIPLE SCLEROSIS
     Route: 042
     Dates: start: 200910
  4. HYDROCODONE W/ACETAMINOPHEN [Concomitant]
  5. LISINOPRIL [Concomitant]
  6. LASIX [Suspect]
  7. K-DUR [Concomitant]
  8. BETASERON [Concomitant]
  9. AMBIEN [Concomitant]
  10. FLONASE [Concomitant]
  11. SUMATRIPTAN SUCCINATE [Concomitant]
  12. VALIUM [Concomitant]
  13. NUVIGIL [Concomitant]
  14. AMANTADINE [Concomitant]
  15. ALBUTEROL SULFATE [Concomitant]
  16. BACLOFEN [Concomitant]
  17. WELLBUTRIN XL [Concomitant]
  18. FENTANYL [Concomitant]
  19. HYDROCHLOROTHIAZIDE [Concomitant]
  20. NEXIUM [Concomitant]
  21. CO-GESIC [Concomitant]

REACTIONS (17)
  - Convulsion [None]
  - Presyncope [None]
  - Asthenia [None]
  - Condition aggravated [None]
  - Tremor [None]
  - Fatigue [None]
  - Stress [None]
  - Hypotension [None]
  - Headache [None]
  - Pain in extremity [None]
  - Multiple sclerosis relapse [None]
  - Malaise [None]
  - Muscular weakness [None]
  - Tongue biting [None]
  - Drooling [None]
  - Inappropriate schedule of drug administration [None]
  - Syncope [None]
